FAERS Safety Report 4661684-6 (Version None)
Quarter: 2005Q2

REPORT INFORMATION
  Report Type: 
  Country: None (occurrence: None)
  Receive Date: 20050502
  Receipt Date: 20050120
  Transmission Date: 20051028
  Serious: No
  Sender: FDA-Public Use
  Company Number: 200510558US

PATIENT
  Age: 67 Year
  Sex: Male
  Weight: 62 kg

DRUGS (1)
  1. KETEK [Suspect]
     Indication: PNEUMONIA
     Dosage: QD
     Dates: start: 20050111, end: 20050115

REACTIONS (1)
  - DYSGEUSIA [None]
